FAERS Safety Report 23677616 (Version 1)
Quarter: 2024Q1

REPORT INFORMATION
  Report Type: Spontaneous
  Country: US (occurrence: None)
  Receive Date: 20240326
  Receipt Date: 20240326
  Transmission Date: 20240410
  Serious: Yes (Life-Threatening, Hospitalization)
  Sender: FDA-Public Use
  Company Number: None

PATIENT
  Age: 1 Year
  Sex: Male
  Weight: 12.3 kg

DRUGS (1)
  1. LORAZEPAM [Suspect]
     Active Substance: LORAZEPAM
     Indication: Seizure
     Dosage: FREQUENCY : ONCE;?
     Route: 042
     Dates: start: 20240222, end: 20240222

REACTIONS (3)
  - Urticaria [None]
  - Stridor [None]
  - Respiratory depression [None]

NARRATIVE: CASE EVENT DATE: 20240222
